FAERS Safety Report 7708677-X (Version None)
Quarter: 2011Q3

REPORT INFORMATION
  Report Type: 
  Country: None (occurrence: None)
  Receive Date: 20110825
  Receipt Date: 20110816
  Transmission Date: 20111222
  Serious: Yes (Hospitalization, Other)
  Sender: FDA-Public Use
  Company Number: US-NOVOPROD-332663

PATIENT
  Sex: Male
  Weight: 196.46 kg

DRUGS (4)
  1. IBUPROFEN [Concomitant]
     Indication: ARTHRALGIA
     Dosage: UNK
     Route: 048
  2. LIRAGLUTIDE FLEXPEN [Suspect]
     Dosage: 3.0 MG, QD
     Route: 058
  3. LIRAGLUTIDE FLEXPEN [Suspect]
     Dosage: 5 MG, QD
     Dates: start: 20110624, end: 20110725
  4. LIRAGLUTIDE FLEXPEN [Suspect]
     Indication: OBESITY
     Dosage: 0.6 MG, QD
     Route: 058
     Dates: start: 20110624

REACTIONS (2)
  - PANCREATITIS [None]
  - HEPATITIS [None]
